FAERS Safety Report 7869026-X (Version None)
Quarter: 2011Q4

REPORT INFORMATION
  Report Type: 
  Country: None (occurrence: None)
  Receive Date: 20111028
  Receipt Date: 20101223
  Transmission Date: 20120403
  Serious: No
  Sender: FDA-Public Use
  Company Number: US-AMGEN-USASP2010011076

PATIENT
  Sex: Female

DRUGS (9)
  1. ENBREL [Suspect]
     Indication: PRODUCT USED FOR UNKNOWN INDICATION
     Dosage: 50 MG, 2 TIMES/WK
     Route: 058
  2. GLUCOSAMINE [Concomitant]
     Dosage: 500 MG, UNK
  3. ACTIGALL [Concomitant]
     Dosage: 300 MG, UNK
  4. VECTICAL [Concomitant]
     Dosage: 3 A?G, UNK
     Route: 061
  5. ASPIRIN [Concomitant]
     Dosage: 81 MG, UNK
  6. VITAMIN D [Concomitant]
     Dosage: 1000 IU, UNK
  7. CALCIUM [Concomitant]
     Dosage: 500 MG, UNK
  8. VITAMIN C                          /00008001/ [Concomitant]
     Dosage: 100 MG, UNK
  9. TACLONEX [Concomitant]
     Route: 061

REACTIONS (2)
  - PSORIASIS [None]
  - DRUG INEFFECTIVE [None]
